FAERS Safety Report 25754880 (Version 1)
Quarter: 2025Q3

REPORT INFORMATION
  Report Type: Spontaneous
  Country: EU (occurrence: EU)
  Receive Date: 20250903
  Receipt Date: 20250903
  Transmission Date: 20251020
  Serious: Yes (Hospitalization, Other)
  Sender: RANBAXY
  Company Number: EU-SUN PHARMACEUTICAL INDUSTRIES LTD-2025R1-525291

PATIENT
  Age: 50 Year
  Sex: Male

DRUGS (3)
  1. LEVETIRACETAM [Suspect]
     Active Substance: LEVETIRACETAM
     Indication: Psychiatric evaluation
     Route: 065
  2. QUETIAPINE [Suspect]
     Active Substance: QUETIAPINE
     Indication: Psychiatric evaluation
     Route: 065
  3. LORAZEPAM [Suspect]
     Active Substance: LORAZEPAM
     Indication: Psychiatric evaluation
     Route: 065

REACTIONS (4)
  - Heat stroke [Not Recovered/Not Resolved]
  - Rhabdomyolysis [Unknown]
  - Dystonia [Unknown]
  - Multiple organ dysfunction syndrome [Unknown]
